FAERS Safety Report 7919327-1 (Version None)
Quarter: 2011Q4

REPORT INFORMATION
  Report Type: 
  Country: None (occurrence: None)
  Receive Date: 20111115
  Receipt Date: 20111115
  Transmission Date: 20120403
  Serious: No
  Sender: FDA-Public Use
  Company Number: None

PATIENT
  Age: 18 Year
  Sex: Male

DRUGS (1)
  1. CEREBYX [Suspect]
     Dosage: 1 GRAM ONCE IV PIGGYBACK
     Route: 042
     Dates: start: 20111109, end: 20111109

REACTIONS (1)
  - CONVULSION [None]
